FAERS Safety Report 20103016 (Version 1)
Quarter: 2021Q4

REPORT INFORMATION
  Report Type: Spontaneous
  Country: US (occurrence: None)
  Receive Date: 20211122
  Receipt Date: 20211122
  Transmission Date: 20220303
  Serious: No
  Sender: FDA-Public Use
  Company Number: None

PATIENT

DRUGS (2)
  1. NOVOLOG MIX 70/30 [Suspect]
     Active Substance: INSULIN ASPART
  2. NOVOLIN 70/30 [Suspect]
     Active Substance: INSULIN HUMAN

REACTIONS (6)
  - Intercepted product dispensing error [None]
  - Product label confusion [None]
  - Product packaging confusion [None]
  - Product name confusion [None]
  - Product name confusion [None]
  - Intercepted product preparation error [None]
